FAERS Safety Report 5831854-X (Version None)
Quarter: 2008Q3

REPORT INFORMATION
  Report Type: 
  Country: None (occurrence: None)
  Receive Date: 20080729
  Receipt Date: 20080722
  Transmission Date: 20090109
  Serious: Yes (Death)
  Sender: FDA-Public Use
  Company Number: 2008SP015162

PATIENT
  Age: 58 Year
  Sex: Male

DRUGS (7)
  1. POSACONAZOLE [Suspect]
     Indication: ANTIFUNGAL PROPHYLAXIS
     Dosage: 200 MG;TID;PO
     Route: 048
     Dates: start: 20070201
  2. CYCLOPHOSPHAMIDE [Concomitant]
  3. VINCRISTINE [Concomitant]
  4. DOXORUBICIN HCL [Concomitant]
  5. DEXAMETHASONE [Concomitant]
  6. METHOTREXATE [Concomitant]
  7. CYTARABINE [Concomitant]

REACTIONS (9)
  - BLOOD CULTURE POSITIVE [None]
  - HAEMOSIDEROSIS [None]
  - HEPATIC FIBROSIS [None]
  - KLEBSIELLA INFECTION [None]
  - LUNG NEOPLASM [None]
  - NEUTROPENIA [None]
  - SCEDOSPORIUM INFECTION [None]
  - SEPSIS [None]
  - STENOTROPHOMONAS INFECTION [None]
